FAERS Safety Report 14895881 (Version 2)
Quarter: 2018Q2

REPORT INFORMATION
  Report Type: Spontaneous
  Country: US (occurrence: US)
  Receive Date: 20180515
  Receipt Date: 20180601
  Transmission Date: 20180711
  Serious: Yes (Disabling, Other)
  Sender: FDA-Public Use
  Company Number: US-AMGEN-USASP2018063779

PATIENT
  Age: 60 Year
  Sex: Female
  Weight: 97.51 kg

DRUGS (8)
  1. ATENOLOL. [Concomitant]
     Active Substance: ATENOLOL
     Dosage: 100 MG, QD
     Route: 048
  2. LEVAQUIN [Concomitant]
     Active Substance: LEVOFLOXACIN
     Dosage: 750 MG, QD
     Route: 048
  3. FLONASE [Concomitant]
     Active Substance: FLUTICASONE PROPIONATE
     Dosage: 50 MCG/ACT
     Route: 045
  4. REPATHA [Suspect]
     Active Substance: EVOLOCUMAB
     Indication: TYPE IIA HYPERLIPIDAEMIA
     Dosage: 140 MG, Q2WK
     Route: 058
     Dates: start: 201803, end: 20180422
  5. REPATHA [Suspect]
     Active Substance: EVOLOCUMAB
     Indication: HYPERLIPIDAEMIA
  6. BACID [Concomitant]
     Active Substance: LACTOBACILLUS ACIDOPHILUS
     Dosage: UNK, QD
     Route: 048
  7. IRBESARTAN. [Concomitant]
     Active Substance: IRBESARTAN
     Dosage: 300 MG, QD
     Route: 048
  8. PRILOSEC [Concomitant]
     Active Substance: OMEPRAZOLE MAGNESIUM
     Dosage: 20 MG, QD
     Route: 048

REACTIONS (13)
  - Influenza like illness [Recovered/Resolved]
  - Heart rate abnormal [Unknown]
  - Bronchitis [Not Recovered/Not Resolved]
  - Dizziness [Unknown]
  - Pneumonia [Unknown]
  - Hypotension [Unknown]
  - Pharyngitis [Unknown]
  - Dysuria [Unknown]
  - Oral herpes [Unknown]
  - Decreased appetite [Unknown]
  - Tinnitus [Unknown]
  - Weight decreased [Unknown]
  - Acute sinusitis [Unknown]

NARRATIVE: CASE EVENT DATE: 2018
